FAERS Safety Report 16089759 (Version 1)
Quarter: 2019Q1

REPORT INFORMATION
  Report Type: Spontaneous
  Country: FR (occurrence: FR)
  Receive Date: 20190319
  Receipt Date: 20190319
  Transmission Date: 20190418
  Serious: Yes (Hospitalization, Other)
  Sender: FDA-Public Use
  Company Number: FR-CASPER PHARMA LLC-2019CAS000103

PATIENT
  Age: 3 Year
  Sex: Male
  Weight: 11.2 kg

DRUGS (3)
  1. VITAMIN A PALMITATE [Suspect]
     Active Substance: VITAMIN A PALMITATE
     Dosage: 13400 INTERNATIONAL UNIT, QD
  2. VITAMIN A PALMITATE [Suspect]
     Active Substance: VITAMIN A PALMITATE
     Indication: AUTISM SPECTRUM DISORDER
     Dosage: 100000 INTERNATIONAL UNIT, QD
     Route: 065
  3. VITAMIN A PALMITATE [Suspect]
     Active Substance: VITAMIN A PALMITATE
     Dosage: 150000 INTERNATIONAL UNIT, QD
     Route: 065

REACTIONS (3)
  - Hypercalcaemia [Unknown]
  - Product use in unapproved indication [Unknown]
  - Hypervitaminosis A [Unknown]
